FAERS Safety Report 9131861 (Version 1)
Quarter: 2013Q1

REPORT INFORMATION
  Report Type: Report from Study
  Country: US (occurrence: US)
  Receive Date: 20130301
  Receipt Date: 20130301
  Transmission Date: 20140127
  Serious: No
  Sender: FDA-Public Use
  Company Number: US-MYLANLABS-2012S1018177

PATIENT
  Age: 27 Year
  Sex: Male

DRUGS (6)
  1. AMNESTEEM CAPSULES [Suspect]
     Dates: start: 20120612, end: 201207
  2. AMNESTEEM CAPSULES [Suspect]
     Route: 048
     Dates: start: 201208
  3. MYORISAN [Suspect]
     Dates: start: 20120813
  4. IBUPROFEN [Concomitant]
  5. TYLENOL [Concomitant]
  6. CETIRIZINE [Concomitant]

REACTIONS (2)
  - Arthralgia [Not Recovered/Not Resolved]
  - Blood triglycerides increased [Recovered/Resolved]
